FAERS Safety Report 6065675-2 (Version None)
Quarter: 2009Q1

REPORT INFORMATION
  Report Type: 
  Country: None (occurrence: None)
  Receive Date: 20090130
  Receipt Date: 20090116
  Transmission Date: 20090719
  Serious: Yes (Hospitalization)
  Sender: FDA-Public Use
  Company Number: 6048294

PATIENT
  Age: 95 Year
  Sex: Female

DRUGS (8)
  1. BISOPROLOL FUMARATE [Suspect]
     Indication: DRUG USE FOR UNKNOWN INDICATION
     Dosage: 375 MG (375 MG,1 IN 1 D) ORAL
     Route: 048
     Dates: end: 20081006
  2. LEVOTHYROXINE SODIUM [Suspect]
     Indication: HYPOTHYROIDISM
     Dosage: 50 MCG (50 MCG,1 N 1 D) ORAL
     Route: 048
     Dates: start: 20080927, end: 20081007
  3. KARDEGIC (ACETYLSALICYLATE LYSINE) [Suspect]
     Indication: DRUG USE FOR UNKNOWN INDICATION
     Dosage: 160 MG (160 MG,1 IN 1 D) ORAL
     Route: 048
     Dates: end: 20081006
  4. LANSOPRAZOLE [Suspect]
     Indication: DRUG USE FOR UNKNOWN INDICATION
     Dosage: 15 MG (15 MG,1 IN 1 D) ORAL
     Route: 048
     Dates: end: 20081006
  5. ALLOPURINOL [Concomitant]
  6. LANTUS [Concomitant]
  7. NITROGLYCERIN [Concomitant]
  8. FUROSEMIDE (FUROSEMIDE) [Concomitant]

REACTIONS (3)
  - AGITATION [None]
  - CONFUSIONAL STATE [None]
  - HALLUCINATION, VISUAL [None]
